FAERS Safety Report 18179034 (Version 1)
Quarter: 2020Q3

REPORT INFORMATION
  Report Type: Spontaneous
  Country: US (occurrence: US)
  Receive Date: 20200821
  Receipt Date: 20200821
  Transmission Date: 20201103
  Serious: Yes (Death)
  Sender: FDA-Public Use
  Company Number: US-ROCHE-2663323

PATIENT
  Age: 50 Year
  Sex: Female

DRUGS (2)
  1. HERCEPTIN [Suspect]
     Active Substance: TRASTUZUMAB
     Indication: HER2 POSITIVE BREAST CANCER
     Route: 065
  2. TYKERB [Concomitant]
     Active Substance: LAPATINIB DITOSYLATE

REACTIONS (1)
  - Road traffic accident [Fatal]

NARRATIVE: CASE EVENT DATE: 2020
